FAERS Safety Report 17648024 (Version 1)
Quarter: 2020Q2

REPORT INFORMATION
  Report Type: Spontaneous
  Country: DE (occurrence: DE)
  Receive Date: 20200408
  Receipt Date: 20200408
  Transmission Date: 20200713
  Serious: Yes (Other)
  Sender: FDA-Public Use
  Company Number: DE-ALLERGAN-2014550US

PATIENT
  Sex: Female
  Weight: 63 kg

DRUGS (2)
  1. LISINOPRIL. [Concomitant]
     Active Substance: LISINOPRIL
     Indication: PRODUCT USED FOR UNKNOWN INDICATION
     Dosage: 1 TABLET, QD
     Dates: start: 20000601
  2. GANFORT [Suspect]
     Active Substance: BIMATOPROST\TIMOLOL
     Indication: INTRAOCULAR PRESSURE TEST
     Dosage: 1 GTT, QD
     Route: 047
     Dates: start: 20200208

REACTIONS (3)
  - Blindness [Unknown]
  - Eye pain [Unknown]
  - Migraine with aura [Unknown]

NARRATIVE: CASE EVENT DATE: 20200322
